FAERS Safety Report 4526709-7 (Version None)
Quarter: 2004Q4

REPORT INFORMATION
  Report Type: 
  Country: None (occurrence: None)
  Receive Date: 20041214
  Receipt Date: 20041206
  Transmission Date: 20050328
  Serious: Yes (Death, Hospitalization)
  Sender: FDA-Public Use
  Company Number: JP-JNJFOC-20041202094

PATIENT
  Sex: Female

DRUGS (18)
  1. DUROTEP [Suspect]
     Indication: CANCER PAIN
     Route: 062
  2. RISPERDAL [Concomitant]
     Indication: DELIRIUM
     Route: 049
  3. MORPHINE HYDROCHLORIDE [Concomitant]
     Route: 049
  4. MORPHINE HYDROCHLORIDE [Concomitant]
     Route: 049
  5. MORPHINE HYDROCHLORIDE [Concomitant]
     Indication: CANCER PAIN
     Route: 049
  6. ZALTOPROFEN [Concomitant]
     Indication: CANCER PAIN
     Route: 049
  7. SENNOSIDE [Concomitant]
     Indication: CONSTIPATION
     Dosage: 1-2 DOSAGE FORM/DAY
     Route: 049
  8. MAGNESIUM OXIDE [Concomitant]
     Indication: CONSTIPATION
     Dosage: 0.5 - 1.5 G/DAY
     Route: 049
  9. RABEPRAZOLE SODIUM [Concomitant]
     Route: 049
  10. SODIUM PICOSULFATE [Concomitant]
     Indication: CONSTIPATION
     Dosage: 5-15 MG/DAY
     Route: 049
  11. MORPHINE HYDROCHLORIDE [Concomitant]
     Route: 058
  12. MORPHINE HYDROCHLORIDE [Concomitant]
     Route: 058
  13. MORPHINE HYDROCHLORIDE [Concomitant]
     Route: 058
  14. MORPHINE HYDROCHLORIDE [Concomitant]
     Route: 065
  15. MORPHINE HYDROCHLORIDE [Concomitant]
     Route: 065
  16. MORPHINE HYDROCHLORIDE [Concomitant]
     Route: 065
  17. MORPHINE HYDROCHLORIDE [Concomitant]
     Route: 065
  18. MORPHINE HYDROCHLORIDE [Concomitant]
     Route: 065

REACTIONS (4)
  - DELIRIUM [None]
  - DYSPNOEA EXACERBATED [None]
  - MALIGNANT NEOPLASM PROGRESSION [None]
  - SMALL INTESTINE CARCINOMA [None]
